FAERS Safety Report 9382424 (Version 1)
Quarter: 2013Q3

REPORT INFORMATION
  Report Type: Report from Study
  Country: US (occurrence: US)
  Receive Date: 20130703
  Receipt Date: 20130703
  Transmission Date: 20140515
  Serious: Yes (Hospitalization, Other)
  Sender: FDA-Public Use
  Company Number: US-ABBOTT-13P-163-1110788-00

PATIENT
  Age: 50 Year
  Sex: 0

DRUGS (1)
  1. HUMIRA [Suspect]
     Indication: RHEUMATOID ARTHRITIS

REACTIONS (7)
  - Pain [Unknown]
  - Headache [Not Recovered/Not Resolved]
  - Gastric disorder [Unknown]
  - Hypophagia [Unknown]
  - Diabetes mellitus [Unknown]
  - Hepatic enzyme increased [Unknown]
  - Ovarian cyst [Unknown]
